FAERS Safety Report 23049288 (Version 2)
Quarter: 2023Q4

REPORT INFORMATION
  Report Type: Report from Study
  Country: US (occurrence: US)
  Receive Date: 20231010
  Receipt Date: 20231011
  Transmission Date: 20240110
  Serious: Yes (Other)
  Sender: FDA-Public Use
  Company Number: US-ABBVIE-5443093

PATIENT
  Sex: Female

DRUGS (2)
  1. SKYRIZI [Suspect]
     Active Substance: RISANKIZUMAB-RZAA
     Indication: Crohn^s disease
     Route: 041
     Dates: start: 20230927
  2. LAMICTAL [Concomitant]
     Active Substance: LAMOTRIGINE
     Indication: Seizure
     Dates: start: 20230927

REACTIONS (5)
  - Seizure [Unknown]
  - Erythema [Unknown]
  - Pruritus [Unknown]
  - Abdominal pain upper [Recovered/Resolved]
  - Infusion site rash [Recovering/Resolving]

NARRATIVE: CASE EVENT DATE: 20230101
